FAERS Safety Report 16303623 (Version 1)
Quarter: 2019Q2

REPORT INFORMATION
  Report Type: Spontaneous
  Country: PL (occurrence: PL)
  Receive Date: 20190513
  Receipt Date: 20190513
  Transmission Date: 20190711
  Serious: Yes (Death, Hospitalization)
  Sender: FDA-Public Use
  Company Number: PL-ROCHE-2314145

PATIENT
  Age: 66 Year
  Sex: Male
  Weight: 85 kg

DRUGS (1)
  1. ROACTEMRA [Suspect]
     Active Substance: TOCILIZUMAB
     Indication: RHEUMATOID ARTHRITIS
     Route: 058
     Dates: start: 20190227, end: 20190313

REACTIONS (11)
  - Gamma-glutamyltransferase increased [Fatal]
  - Aspartate aminotransferase increased [Fatal]
  - Hepatorenal syndrome [Fatal]
  - Jaundice [Fatal]
  - Alanine aminotransferase increased [Fatal]
  - Lymphadenopathy [Fatal]
  - Coagulopathy [Fatal]
  - Hepatic failure [Fatal]
  - Blood alkaline phosphatase increased [Fatal]
  - Blood bilirubin increased [Fatal]
  - Upper gastrointestinal haemorrhage [Fatal]
